FAERS Safety Report 12634753 (Version 2)
Quarter: 2016Q3

REPORT INFORMATION
  Report Type: Report from Study
  Country: IT (occurrence: IT)
  Receive Date: 20160809
  Receipt Date: 20160908
  Transmission Date: 20161109
  Serious: Yes (Hospitalization)
  Sender: FDA-Public Use
  Company Number: IT-CELGENEUS-ITA-2016047823

PATIENT
  Age: 69 Year
  Sex: Female
  Weight: 53 kg

DRUGS (46)
  1. HUMALOG [Concomitant]
     Active Substance: INSULIN LISPRO
     Indication: DIABETES MELLITUS
     Dosage: 3/6/5 UI
     Route: 058
     Dates: start: 201601, end: 20160425
  2. LACTOBACILLUS [Concomitant]
     Active Substance: LACTOBACILLUS ACIDOPHILUS
     Indication: DIARRHOEA
     Route: 048
     Dates: start: 20160403, end: 20160405
  3. CLEXANE [Concomitant]
     Active Substance: ENOXAPARIN SODIUM
     Dosage: 4000+6000
     Route: 058
     Dates: start: 20160429
  4. KCL RETARD [Concomitant]
     Active Substance: POTASSIUM CHLORIDE
     Indication: HYPOKALAEMIA
     Route: 048
     Dates: start: 20160503, end: 20160506
  5. GEMCITABINE [Suspect]
     Active Substance: GEMCITABINE\GEMCITABINE HYDROCHLORIDE
     Indication: ADENOCARCINOMA PANCREAS
     Route: 041
     Dates: start: 20160323, end: 20160330
  6. PANTOPRAZOLE [Concomitant]
     Active Substance: PANTOPRAZOLE SODIUM
     Route: 041
     Dates: start: 20160518
  7. LUVION [Concomitant]
     Active Substance: CANRENONE
     Indication: HEPATIC CIRRHOSIS
     Dosage: 5 MILLIGRAM
     Route: 048
     Dates: start: 20160403
  8. ONDANSETRON [Concomitant]
     Active Substance: ONDANSETRON
     Indication: PREMEDICATION
     Route: 041
     Dates: start: 20160323, end: 20160419
  9. DEXAMETHASONE. [Concomitant]
     Active Substance: DEXAMETHASONE
     Indication: PREMEDICATION
     Route: 041
     Dates: start: 20160323, end: 20160419
  10. GEMCITABINE [Suspect]
     Active Substance: GEMCITABINE\GEMCITABINE HYDROCHLORIDE
     Route: 041
     Dates: start: 20160412
  11. CREON [Concomitant]
     Active Substance: PANCRELIPASE AMYLASE\PANCRELIPASE LIPASE\PANCRELIPASE PROTEASE
     Route: 048
     Dates: start: 201601, end: 20160425
  12. LANTUS [Concomitant]
     Active Substance: INSULIN GLARGINE
     Route: 058
     Dates: start: 201601, end: 20160425
  13. LASIX [Concomitant]
     Active Substance: FUROSEMIDE
     Dosage: 1 GRAM
     Route: 048
     Dates: start: 201601, end: 20160402
  14. LASIX [Concomitant]
     Active Substance: FUROSEMIDE
     Dosage: 100 MILLIGRAM
     Route: 048
     Dates: start: 20160411, end: 20160426
  15. ABRAXANE [Suspect]
     Active Substance: PACLITAXEL
     Indication: ADENOCARCINOMA PANCREAS
     Route: 041
     Dates: start: 20160323, end: 20160330
  16. ABRAXANE [Suspect]
     Active Substance: PACLITAXEL
     Route: 041
     Dates: start: 20160412
  17. CREON [Concomitant]
     Active Substance: PANCRELIPASE AMYLASE\PANCRELIPASE LIPASE\PANCRELIPASE PROTEASE
     Route: 048
     Dates: start: 20160426, end: 20160502
  18. CREON [Concomitant]
     Active Substance: PANCRELIPASE AMYLASE\PANCRELIPASE LIPASE\PANCRELIPASE PROTEASE
     Route: 048
     Dates: start: 20160503
  19. HUMALOG [Concomitant]
     Active Substance: INSULIN LISPRO
     Dosage: 6+9+8
     Route: 058
     Dates: start: 20160429
  20. LANTUS [Concomitant]
     Active Substance: INSULIN GLARGINE
     Route: 058
     Dates: start: 20160426
  21. PANTOPRAZOLE [Concomitant]
     Active Substance: PANTOPRAZOLE SODIUM
     Route: 041
     Dates: start: 20160503, end: 20160517
  22. LASIX [Concomitant]
     Active Substance: FUROSEMIDE
     Route: 048
     Dates: start: 20160518
  23. LASIX [Concomitant]
     Active Substance: FUROSEMIDE
     Route: 041
     Dates: start: 20160501, end: 20160516
  24. SIMVASTATINE [Concomitant]
     Active Substance: SIMVASTATIN
     Indication: METABOLIC SYNDROME
     Dosage: 100 MILLIGRAM
     Route: 048
     Dates: start: 2013, end: 20160428
  25. LOPERAMIDE [Concomitant]
     Active Substance: LOPERAMIDE
     Route: 048
     Dates: start: 20160427, end: 20160427
  26. HUMALOG [Concomitant]
     Active Substance: INSULIN LISPRO
     Dosage: 3+5+8
     Route: 058
     Dates: start: 20160428, end: 20160428
  27. LANTUS [Concomitant]
     Active Substance: INSULIN GLARGINE
     Indication: DIABETES MELLITUS
     Route: 058
     Dates: start: 201601
  28. CLEXANE [Concomitant]
     Active Substance: ENOXAPARIN SODIUM
     Indication: THROMBOCYTOSIS
     Route: 058
     Dates: start: 20160428, end: 20160428
  29. CLEXANE [Concomitant]
     Active Substance: ENOXAPARIN SODIUM
     Route: 058
     Dates: start: 20160429
  30. LASIX [Concomitant]
     Active Substance: FUROSEMIDE
     Indication: HEPATIC CIRRHOSIS
     Route: 048
     Dates: start: 20160403, end: 20160410
  31. LASIX [Concomitant]
     Active Substance: FUROSEMIDE
     Dosage: 20+250
     Route: 041
     Dates: start: 20160429, end: 20160429
  32. LASIX [Concomitant]
     Active Substance: FUROSEMIDE
     Route: 041
     Dates: start: 20160429, end: 20160429
  33. CONGESCOR [Concomitant]
     Active Substance: BISOPROLOL
     Indication: METABOLIC SYNDROME
     Dosage: 10 MILLIGRAM
     Route: 048
     Dates: start: 2013
  34. CARDIOASPIRIN [Concomitant]
     Active Substance: ASPIRIN
     Indication: THROMBOCYTOSIS
     Dosage: 6 MILLIGRAM
     Route: 048
     Dates: start: 201601, end: 20160428
  35. LOPERAMIDE [Concomitant]
     Active Substance: LOPERAMIDE
     Route: 048
     Dates: start: 20160428, end: 20160428
  36. KCL RETARD [Concomitant]
     Active Substance: POTASSIUM CHLORIDE
     Route: 048
     Dates: start: 20160507, end: 20160509
  37. CREON [Concomitant]
     Active Substance: PANCRELIPASE AMYLASE\PANCRELIPASE LIPASE\PANCRELIPASE PROTEASE
     Route: 048
     Dates: start: 20160503
  38. HUMALOG [Concomitant]
     Active Substance: INSULIN LISPRO
     Dosage: 6+9+8
     Route: 058
     Dates: start: 20160426, end: 20160427
  39. PANTOPRAZOLE [Concomitant]
     Active Substance: PANTOPRAZOLE SODIUM
     Indication: GASTRITIS PROPHYLAXIS
     Route: 048
     Dates: start: 201601, end: 20160428
  40. LASIX [Concomitant]
     Active Substance: FUROSEMIDE
     Route: 048
     Dates: start: 20160427, end: 20160428
  41. LOPERAMIDE [Concomitant]
     Active Substance: LOPERAMIDE
     Indication: DIARRHOEA
     Route: 048
     Dates: start: 20160403, end: 20160403
  42. FIDATO [Concomitant]
     Active Substance: CEFTRIAXONE SODIUM
     Indication: PYREXIA
     Route: 030
     Dates: start: 20160407, end: 20160409
  43. CREON [Concomitant]
     Active Substance: PANCRELIPASE AMYLASE\PANCRELIPASE LIPASE\PANCRELIPASE PROTEASE
     Indication: PANCREATIC INSUFFICIENCY
     Route: 048
     Dates: start: 201601, end: 20160425
  44. PANTOPRAZOLE [Concomitant]
     Active Substance: PANTOPRAZOLE SODIUM
     Route: 048
     Dates: start: 20160429, end: 20160430
  45. LUVION [Concomitant]
     Active Substance: CANRENONE
     Route: 048
     Dates: start: 201601, end: 20160429
  46. LUVION [Concomitant]
     Active Substance: CANRENONE
     Route: 041
     Dates: start: 20160430, end: 20160516

REACTIONS (5)
  - Acute pulmonary oedema [Recovered/Resolved]
  - Acute respiratory distress syndrome [Recovered/Resolved]
  - Muscle atrophy [Not Recovered/Not Resolved]
  - Febrile neutropenia [Recovered/Resolved]
  - Sepsis [Recovered/Resolved]

NARRATIVE: CASE EVENT DATE: 20160426
